FAERS Safety Report 5073461-5 (Version None)
Quarter: 2006Q3

REPORT INFORMATION
  Report Type: 
  Country: None (occurrence: None)
  Receive Date: 20060717
  Receipt Date: 20051111
  Transmission Date: 20061208
  Serious: No
  Sender: FDA-Public Use
  Company Number: 2005002214

PATIENT
  Age: 72 Year
  Weight: 51.7101 kg

DRUGS (1)
  1. TARCEVA [Suspect]
     Indication: NON-SMALL CELL LUNG CANCER
     Dosage: 150 MG (QD), ORAL
     Route: 048

REACTIONS (2)
  - HEMIPARESIS [None]
  - NERVOUS SYSTEM DISORDER [None]
